FAERS Safety Report 22122746 (Version 9)
Quarter: 2023Q4

REPORT INFORMATION
  Report Type: Report from Study
  Country: US (occurrence: US)
  Receive Date: 20230321
  Receipt Date: 20231021
  Transmission Date: 20240110
  Serious: No
  Sender: FDA-Public Use
  Company Number: US-002147023-NVSC2023US060136

PATIENT
  Sex: Male

DRUGS (1)
  1. KESIMPTA [Suspect]
     Active Substance: OFATUMUMAB
     Indication: Product used for unknown indication
     Dosage: UNK
     Route: 065

REACTIONS (18)
  - Pain in extremity [Recovering/Resolving]
  - Musculoskeletal stiffness [Unknown]
  - Hypokinesia [Unknown]
  - Peripheral vascular disorder [Unknown]
  - Skin discolouration [Unknown]
  - Peripheral swelling [Unknown]
  - Balance disorder [Unknown]
  - Depression [Unknown]
  - Anger [Unknown]
  - Hand deformity [Unknown]
  - Limb discomfort [Unknown]
  - Injection site pain [Unknown]
  - Injection site mass [Unknown]
  - Headache [Unknown]
  - Fall [Unknown]
  - Temperature intolerance [Unknown]
  - Muscle spasms [Unknown]
  - Muscular weakness [Unknown]
